FAERS Safety Report 5809867-3 (Version None)
Quarter: 2008Q3

REPORT INFORMATION
  Report Type: 
  Country: None (occurrence: None)
  Receive Date: 20080715
  Receipt Date: 20080709
  Transmission Date: 20090109
  Serious: Yes (Hospitalization)
  Sender: FDA-Public Use
  Company Number: JP-ASTRAZENECA-2008AP05128

PATIENT
  Age: 50 Year
  Sex: Female
  Weight: 45 kg

DRUGS (2)
  1. IRESSA [Suspect]
     Indication: LUNG ADENOCARCINOMA
     Route: 048
     Dates: start: 20080625, end: 20080625
  2. CODEINE PHOSPHATE [Concomitant]
     Indication: COUGH
     Route: 048
     Dates: start: 20080612

REACTIONS (1)
  - LUNG DISORDER [None]
